FAERS Safety Report 13664548 (Version 1)
Quarter: 2017Q2

REPORT INFORMATION
  Report Type: Report from Study
  Country: US (occurrence: US)
  Receive Date: 20170619
  Receipt Date: 20170619
  Transmission Date: 20170830
  Serious: Yes (Other)
  Sender: FDA-Public Use
  Company Number: US-PFIZER INC-2017260890

PATIENT
  Age: 50 Year
  Sex: Male

DRUGS (2)
  1. ADRIAMYCIN [Suspect]
     Active Substance: DOXORUBICIN HYDROCHLORIDE
     Indication: URETHRAL CANCER
     Dosage: UNK, CYCLIC
     Route: 037
  2. GEMCITABINE HYDROCHLORIDE. [Suspect]
     Active Substance: GEMCITABINE HYDROCHLORIDE
     Indication: URETHRAL CANCER
     Dosage: UNK, CYCLIC
     Route: 037

REACTIONS (1)
  - Wound infection [Unknown]
